FAERS Safety Report 9120974 (Version 1)
Quarter: 2013Q1

REPORT INFORMATION
  Report Type: Spontaneous
  Country: US (occurrence: US)
  Receive Date: 20130226
  Receipt Date: 20130226
  Transmission Date: 20140127
  Serious: Yes (Other)
  Sender: FDA-Public Use
  Company Number: US-UCBSA-079175

PATIENT
  Sex: Female

DRUGS (8)
  1. NEUPRO [Suspect]
     Indication: NERVOUS SYSTEM DISORDER
     Dosage: DAILY DOSE: 2MG
     Route: 062
     Dates: start: 2012
  2. NEUPRO [Suspect]
     Indication: NERVOUS SYSTEM DISORDER
     Route: 062
  3. PLAVIX [Concomitant]
     Dosage: DAILY DOSE: 75MG
  4. ASPIRIN [Concomitant]
     Dosage: LOW DOSE DAILY
  5. ZOLOFT [Concomitant]
  6. KLONOPIN [Concomitant]
  7. ELAVIL [Concomitant]
  8. STRATTERA [Concomitant]
     Indication: ATTENTION DEFICIT/HYPERACTIVITY DISORDER

REACTIONS (11)
  - Chest pain [Unknown]
  - Dyspnoea exertional [Unknown]
  - Feeling hot [Recovered/Resolved]
  - Hyperhidrosis [Recovered/Resolved]
  - Night sweats [Unknown]
  - Feeling cold [Recovered/Resolved]
  - Application site rash [Unknown]
  - Application site pruritus [Unknown]
  - Dizziness [Recovered/Resolved]
  - Headache [Not Recovered/Not Resolved]
  - Product adhesion issue [Not Recovered/Not Resolved]
